FAERS Safety Report 9484922 (Version 1)
Quarter: 2013Q3

REPORT INFORMATION
  Report Type: Spontaneous
  Country: US (occurrence: US)
  Receive Date: 20130828
  Receipt Date: 20130828
  Transmission Date: 20140515
  Serious: No
  Sender: FDA-Public Use
  Company Number: US-ABBOTT-13P-163-1099659-00

PATIENT
  Sex: Female
  Weight: 40.86 kg

DRUGS (1)
  1. ANDROGEL [Suspect]
     Indication: ACCIDENTAL EXPOSURE TO PRODUCT
     Dates: start: 2011

REACTIONS (3)
  - Precocious puberty [Not Recovered/Not Resolved]
  - Accidental exposure to product [Unknown]
  - Breast enlargement [Not Recovered/Not Resolved]
